FAERS Safety Report 13747537 (Version 3)
Quarter: 2018Q2

REPORT INFORMATION
  Report Type: Report from Study
  Country: US (occurrence: US)
  Receive Date: 20170712
  Receipt Date: 20180509
  Transmission Date: 20180711
  Serious: Yes (Hospitalization)
  Sender: FDA-Public Use
  Company Number: US-EXELIXIS-XL18417009702

PATIENT
  Age: 66 Year
  Sex: Female

DRUGS (11)
  1. VITAMIN B12 [Concomitant]
     Active Substance: CYANOCOBALAMIN
  2. LORAZEPAM. [Concomitant]
     Active Substance: LORAZEPAM
  3. SERTRALINE [Concomitant]
     Active Substance: SERTRALINE HYDROCHLORIDE
  4. XL184 [Suspect]
     Active Substance: CABOZANTINIB
     Dosage: 40 MG, QD
     Route: 048
     Dates: start: 20170608, end: 20170619
  5. NIVOLUMAB [Suspect]
     Active Substance: NIVOLUMAB
     Indication: MALIGNANT GENITOURINARY TRACT NEOPLASM
     Dosage: 3 MG/KG, DAYS 1 AND 15, 28 DAY CYCLE
     Route: 042
     Dates: start: 20161205, end: 20170508
  6. LEVOTHYROXINE. [Concomitant]
     Active Substance: LEVOTHYROXINE
  7. ZOLPIDEM [Concomitant]
     Active Substance: ZOLPIDEM\ZOLPIDEM TARTRATE
  8. XL184 [Suspect]
     Active Substance: CABOZANTINIB
     Indication: MALIGNANT GENITOURINARY TRACT NEOPLASM
     Dosage: 40 MG, QD
     Route: 048
     Dates: start: 20161205, end: 20170521
  9. NIVOLUMAB [Suspect]
     Active Substance: NIVOLUMAB
     Dosage: UNK
     Dates: start: 20170519, end: 20170519
  10. RABEPRAZOLE [Concomitant]
     Active Substance: RABEPRAZOLE
  11. VITAMIN D [Concomitant]
     Active Substance: CHOLECALCIFEROL

REACTIONS (4)
  - Atrioventricular block second degree [Unknown]
  - Electrocardiogram T wave inversion [Unknown]
  - Cardiac failure [Unknown]
  - Electrocardiogram ST segment depression [Unknown]

NARRATIVE: CASE EVENT DATE: 20170522
